APPROVED DRUG PRODUCT: OVULEN
Active Ingredient: ETHYNODIOL DIACETATE; MESTRANOL
Strength: 1MG;0.1MG
Dosage Form/Route: TABLET;ORAL-20
Application: N016029 | Product #002
Applicant: GD SEARLE LLC
Approved: Approved Prior to Jan 1, 1982 | RLD: No | RS: No | Type: DISCN